FAERS Safety Report 9919641 (Version 2)
Quarter: 2015Q1

REPORT INFORMATION
  Report Type: Spontaneous
  Country: RU (occurrence: RU)
  Receive Date: 20140224
  Receipt Date: 20150202
  Transmission Date: 20150721
  Serious: Yes (Death)
  Sender: FDA-Public Use
  Company Number: PHHY2014RU021319

PATIENT
  Sex: Male

DRUGS (1)
  1. AFINITOR [Suspect]
     Active Substance: EVEROLIMUS
     Indication: METASTATIC RENAL CELL CARCINOMA
     Dosage: 10 MG, QD
     Route: 048
     Dates: start: 200903, end: 201204

REACTIONS (13)
  - Cough [Unknown]
  - Dyspnoea [Unknown]
  - Malignant neoplasm progression [Unknown]
  - Stomatitis [Unknown]
  - Metastases to liver [Unknown]
  - Pyrexia [Unknown]
  - Multiple sclerosis [Fatal]
  - Hypercholesterolaemia [Unknown]
  - Fatigue [Unknown]
  - Pneumonitis [Unknown]
  - Metastases to lung [Unknown]
  - Diarrhoea [Unknown]
  - Hypertriglyceridaemia [Unknown]

NARRATIVE: CASE EVENT DATE: 201201
